FAERS Safety Report 15424111 (Version 1)
Quarter: 2018Q3

REPORT INFORMATION
  Report Type: Spontaneous
  Country: GB (occurrence: GB)
  Receive Date: 20180925
  Receipt Date: 20180925
  Transmission Date: 20181010
  Serious: Yes (Death, Other)
  Sender: FDA-Public Use
  Company Number: GB-APOPHARMA USA, INC.-2018AP020727

PATIENT

DRUGS (6)
  1. CLONAZEPAM. [Suspect]
     Active Substance: CLONAZEPAM
     Dosage: 0.025 MG/KG, QD
     Route: 048
  2. CLONAZEPAM. [Suspect]
     Active Substance: CLONAZEPAM
     Dosage: 0.1 MG/KG, QD
     Route: 048
  3. CLONAZEPAM. [Suspect]
     Active Substance: CLONAZEPAM
     Dosage: 0.1 MG/KG, QD
     Route: 042
  4. BUSULPHAN [Suspect]
     Active Substance: BUSULFAN
     Indication: EWING^S SARCOMA
     Dosage: 37.5 MG/M2, QID
     Route: 042
  5. ALKERAN [Suspect]
     Active Substance: MELPHALAN
     Indication: EWING^S SARCOMA
     Dosage: NUNK, UNKNOWN
     Route: 042
  6. CLONAZEPAM. [Suspect]
     Active Substance: CLONAZEPAM
     Indication: SEIZURE
     Dosage: 0.025 MG/KG, QD
     Route: 042

REACTIONS (1)
  - Myelopathy [Fatal]
